FAERS Safety Report 17893575 (Version 1)
Quarter: 2020Q2

REPORT INFORMATION
  Report Type: Spontaneous
  Country: FR (occurrence: FR)
  Receive Date: 20200615
  Receipt Date: 20200615
  Transmission Date: 20200714
  Serious: Yes (Life-Threatening, Hospitalization, Other)
  Sender: FDA-Public Use
  Company Number: FR-CADILA HEALTHCARE LIMITED-FR-ZYDUS-022502

PATIENT

DRUGS (19)
  1. DEXAMPHETAMINE [Suspect]
     Active Substance: AMPHETAMINE
     Indication: NARCOLEPSY
     Dosage: 5 MILLIGRAM,(INTERVAL :1 DAYS)
     Route: 048
     Dates: start: 20171121, end: 20171220
  2. POTASSIUM CHLORIDE. [Suspect]
     Active Substance: POTASSIUM CHLORIDE
     Indication: PRODUCT USED FOR UNKNOWN INDICATION
     Dosage: 1 GRAM
     Dates: end: 20180420
  3. INSULIN [Concomitant]
     Active Substance: INSULIN NOS
     Indication: PRODUCT USED FOR UNKNOWN INDICATION
     Dosage: ()
     Route: 065
  4. METFORMIN [Suspect]
     Active Substance: METFORMIN HYDROCHLORIDE
     Indication: DIABETES MELLITUS
     Dosage: 3 DOSAGE FORM
     Route: 048
     Dates: end: 20180420
  5. LANTUS [Suspect]
     Active Substance: INSULIN GLARGINE
     Indication: DIABETES MELLITUS
     Dosage: 52 INTERNATIONAL UNIT
     Route: 058
     Dates: end: 20180420
  6. ROSUVASTATINE [Suspect]
     Active Substance: ROSUVASTATIN
     Indication: HYPERCHOLESTEROLAEMIA
     Dosage: 5 MILLIGRAM
     Route: 048
     Dates: end: 20180420
  7. KALEORID [Suspect]
     Active Substance: POTASSIUM CHLORIDE
     Indication: PRODUCT USED FOR UNKNOWN INDICATION
     Dosage: 1 DOSAGE FORM,(INTERVAL :1 DAYS)
     Route: 065
  8. LIRAGLUTIDE [Concomitant]
     Active Substance: LIRAGLUTIDE
     Indication: DIABETES MELLITUS
     Dosage: 10 IU ()
     Route: 065
  9. VENLAFAXINE [Suspect]
     Active Substance: VENLAFAXINE HYDROCHLORIDE
     Indication: NARCOLEPSY
     Dosage: 300 MILLIGRAM
     Route: 048
     Dates: start: 2012, end: 20180419
  10. REPAGLINIDE. [Suspect]
     Active Substance: REPAGLINIDE
     Indication: DIABETES MELLITUS
     Dosage: 2 MILLIGRAM
     Route: 048
     Dates: end: 20180420
  11. NOVONORM [Concomitant]
     Active Substance: REPAGLINIDE
     Indication: DIABETES MELLITUS
     Dosage: 2 DOSAGE FORM,(INTERVAL :1 DAYS)
     Route: 065
  12. EFFEXOR [Suspect]
     Active Substance: VENLAFAXINE HYDROCHLORIDE
     Indication: NARCOLEPSY
     Dosage: 75 MILLIGRAM,(INTERVAL :1 DAYS)
     Route: 065
     Dates: start: 2012
  13. DEXAMPHETAMINE [Suspect]
     Active Substance: AMPHETAMINE
     Indication: NARCOLEPSY
     Dosage: 20 MILLIGRAM,(INTERVAL :1 DAYS)
     Route: 048
     Dates: start: 20171114, end: 20180419
  14. HYDROCHLOROTHIAZIDE. [Suspect]
     Active Substance: HYDROCHLOROTHIAZIDE
     Indication: HYPERTENSION
     Dosage: 25 MILLIGRAM
     Route: 048
     Dates: end: 20180420
  15. GLUCOPHAGE [Concomitant]
     Active Substance: METFORMIN HYDROCHLORIDE
     Indication: DIABETES MELLITUS
     Dosage: 1 DOSAGE FORM,(INTERVAL :1 DAYS)
     Route: 065
  16. LIRAGLUTIDE [Suspect]
     Active Substance: LIRAGLUTIDE
     Indication: DIABETES MELLITUS
     Dosage: .6 MILLIGRAM
     Route: 058
     Dates: end: 20180420
  17. ZYPREXA [Suspect]
     Active Substance: OLANZAPINE
     Indication: SLEEP DISORDER
     Dosage: 5 MILLIGRAM,(INTERVAL :1 DAYS)
     Route: 065
  18. IRBESARTAN. [Suspect]
     Active Substance: IRBESARTAN
     Indication: HYPERTENSION
     Dosage: 300 MILLIGRAM
     Route: 048
     Dates: end: 20180420
  19. OLANZAPINE. [Suspect]
     Active Substance: OLANZAPINE
     Indication: PRODUCT USED FOR UNKNOWN INDICATION
     Dosage: 5 MILLIGRAM
     Route: 048
     Dates: start: 2012

REACTIONS (8)
  - Dyspnoea [Recovered/Resolved]
  - Ventricular fibrillation [Unknown]
  - Extrasystoles [Recovering/Resolving]
  - Atrial fibrillation [Recovering/Resolving]
  - Supraventricular extrasystoles [Recovering/Resolving]
  - Cardio-respiratory arrest [Recovering/Resolving]
  - Chest pain [Recovered/Resolved]
  - Discomfort [Recovered/Resolved]

NARRATIVE: CASE EVENT DATE: 20180103
